FAERS Safety Report 13183095 (Version 2)
Quarter: 2017Q1

REPORT INFORMATION
  Report Type: Spontaneous
  Country: PT (occurrence: PT)
  Receive Date: 20170203
  Receipt Date: 20170314
  Transmission Date: 20170428
  Serious: Yes (Hospitalization)
  Sender: FDA-Public Use
  Company Number: US-ASTRAZENECA-2017SE12701

PATIENT
  Age: 152 Day
  Sex: Male

DRUGS (8)
  1. PREVNAR 13 [Concomitant]
     Active Substance: PNEUMOCOCCAL 13-VALENT CONJUGATE VACCINE
     Indication: PRODUCT USED FOR UNKNOWN INDICATION
     Dates: start: 20161216, end: 20161216
  2. VIGANTOL [Concomitant]
     Active Substance: CHOLECALCIFEROL
     Indication: PRODUCT USED FOR UNKNOWN INDICATION
  3. SYNAGIS [Suspect]
     Active Substance: PALIVIZUMAB
     Indication: ANTIVIRAL PROPHYLAXIS
     Dosage: 48.7MG UNKNOWN
     Route: 030
     Dates: start: 20161125, end: 20170120
  4. SYNAGIS [Suspect]
     Active Substance: PALIVIZUMAB
     Indication: ANTIVIRAL PROPHYLAXIS
     Dosage: 42.0MG UNKNOWN
     Route: 030
     Dates: start: 20161221, end: 20161221
  5. SYNAGIS [Suspect]
     Active Substance: PALIVIZUMAB
     Indication: ANTIVIRAL PROPHYLAXIS
     Dosage: 48.7MG UNKNOWN
     Route: 030
     Dates: start: 20170217, end: 20170217
  6. SYNAGIS [Suspect]
     Active Substance: PALIVIZUMAB
     Indication: ANTIVIRAL PROPHYLAXIS
     Dosage: 48.7MG UNKNOWN
     Route: 030
     Dates: start: 20170120, end: 20170120
  7. IRON [Concomitant]
     Active Substance: IRON
     Indication: PRODUCT USED FOR UNKNOWN INDICATION
  8. POLIOMYELITIS VACCINE [Concomitant]
     Active Substance: POLIOMYELITIS VACCINE
     Indication: PRODUCT USED FOR UNKNOWN INDICATION
     Dates: start: 20161216, end: 20161216

REACTIONS (8)
  - Wheezing [Recovering/Resolving]
  - Rales [Recovering/Resolving]
  - Bronchiolitis [Recovering/Resolving]
  - Respiratory syncytial virus test positive [Recovered/Resolved]
  - Bronchospasm [Recovering/Resolving]
  - Therapy non-responder [Recovering/Resolving]
  - Selective eating disorder [Recovering/Resolving]
  - Dyspnoea [Recovering/Resolving]

NARRATIVE: CASE EVENT DATE: 20170121
